FAERS Safety Report 23746951 (Version 2)
Quarter: 2024Q2

REPORT INFORMATION
  Report Type: Spontaneous
  Country: JP (occurrence: JP)
  Receive Date: 20240416
  Receipt Date: 20240427
  Transmission Date: 20240716
  Serious: Yes (Hospitalization, Other)
  Sender: FDA-Public Use
  Company Number: JP-Accord-418953

PATIENT
  Age: 6 Decade
  Sex: Female

DRUGS (6)
  1. OLMESARTAN MEDOXOMIL [Suspect]
     Active Substance: OLMESARTAN MEDOXOMIL
  2. AMLODIPINE [Suspect]
     Active Substance: AMLODIPINE BESYLATE
  3. NIFEDIPINE [Suspect]
     Active Substance: NIFEDIPINE
  4. AZELNIDIPINE [Suspect]
     Active Substance: AZELNIDIPINE
  5. TELMISARTAN [Suspect]
     Active Substance: TELMISARTAN
  6. VILDAGLIPTIN [Suspect]
     Active Substance: VILDAGLIPTIN

REACTIONS (3)
  - Intentional overdose [Unknown]
  - Compartment syndrome [Recovered/Resolved]
  - Angioedema [Recovered/Resolved]
